FAERS Safety Report 7623608-9 (Version None)
Quarter: 2011Q3

REPORT INFORMATION
  Report Type: 
  Country: None (occurrence: None)
  Receive Date: 20110720
  Receipt Date: 20110705
  Transmission Date: 20111222
  Serious: Yes (Hospitalization)
  Sender: FDA-Public Use
  Company Number: CA-SANOFI-AVENTIS-2011SA044382

PATIENT
  Age: 75 Year
  Sex: Male
  Weight: 81 kg

DRUGS (13)
  1. CEFUROXIME [Concomitant]
     Route: 065
     Dates: start: 20110226, end: 20110227
  2. TAMSULOSIN HCL [Concomitant]
     Route: 065
     Dates: end: 20110303
  3. AMLODIPINE [Concomitant]
     Route: 065
     Dates: start: 20110216
  4. PERINDOPRIL ERBUMINE [Concomitant]
     Route: 065
  5. AMLODIPINE [Concomitant]
     Route: 065
  6. ATORVASTATIN [Concomitant]
     Route: 065
  7. ASPIRIN [Concomitant]
     Route: 065
     Dates: start: 20110225
  8. ASPIRIN [Concomitant]
     Route: 065
  9. CLOPIDOGREL [Concomitant]
     Route: 065
  10. PERINDOPRIL ERBUMINE [Concomitant]
     Route: 065
     Dates: start: 20110307
  11. DRONEDARONE HCL [Suspect]
     Indication: ATRIAL FIBRILLATION
     Route: 048
     Dates: start: 20110222, end: 20110312
  12. BISOPROLOL [Concomitant]
     Route: 065
     Dates: end: 20110305
  13. WARFARIN SODIUM [Concomitant]
     Route: 065

REACTIONS (3)
  - LUNG DISORDER [None]
  - ANGINA UNSTABLE [None]
  - CARDIAC FAILURE [None]
